FAERS Safety Report 12405534 (Version 1)
Quarter: 2016Q2

REPORT INFORMATION
  Report Type: Spontaneous
  Country: DE (occurrence: DE)
  Receive Date: 20160525
  Receipt Date: 20160525
  Transmission Date: 20160815
  Serious: Yes (Hospitalization, Other)
  Sender: FDA-Public Use
  Company Number: DE-ASTRAZENECA-2016SE53776

PATIENT
  Age: 67 Year
  Sex: Male
  Weight: 88 kg

DRUGS (16)
  1. TILDIN RATIO PLUS [Concomitant]
  2. FORMOTEROL CT [Concomitant]
     Dosage: 12 UG, BID
  3. IBUFLAM 600 LICHTENSTEIN [Concomitant]
  4. MELOXICAM RATIO [Concomitant]
  5. CLOPIDOGREL [Concomitant]
     Active Substance: CLOPIDOGREL BISULFATE
  6. ZENTIYA COMP [Concomitant]
  7. NOVAMINSULFON LICHTENSTEIN [Concomitant]
     Dosage: 500 MG AS REQUIRED
  8. PANTOPRA Q [Concomitant]
  9. ADCIRCA KOHLPHARMA [Concomitant]
     Indication: PULMONARY HYPERTENSION
     Dosage: 20.0MG UNKNOWN
     Route: 048
     Dates: start: 20141210
  10. AMLO Q [Concomitant]
  11. SPIRIVA [Concomitant]
     Active Substance: TIOTROPIUM BROMIDE MONOHYDRATE
     Dosage: 18 UG, EVERYDAY
  12. SIMVASTATIN Q [Concomitant]
  13. ASS 100 CT [Concomitant]
  14. FORXIGA [Suspect]
     Active Substance: DAPAGLIFLOZIN
     Indication: TYPE 2 DIABETES MELLITUS
     Route: 048
     Dates: start: 20151029, end: 20160407
  15. LANTUS SOLOSTAR [Concomitant]
     Active Substance: INSULIN GLARGINE
     Indication: DIABETES MELLITUS
     Route: 058
     Dates: start: 20131106
  16. REPAGLINID HEXAL [Concomitant]
     Dosage: 1.0MG UNKNOWN

REACTIONS (3)
  - Balanoposthitis [Not Recovered/Not Resolved]
  - Phimosis [Not Recovered/Not Resolved]
  - Epididymitis [Not Recovered/Not Resolved]

NARRATIVE: CASE EVENT DATE: 20160329
